FAERS Safety Report 24591701 (Version 2)
Quarter: 2024Q4

REPORT INFORMATION
  Report Type: Spontaneous
  Country: US (occurrence: US)
  Receive Date: 20241108
  Receipt Date: 20241122
  Transmission Date: 20250115
  Serious: No
  Sender: AMGEN
  Company Number: US-AMGEN-USASP2024217965

PATIENT
  Age: 81 Year
  Sex: Female

DRUGS (5)
  1. REPATHA [Suspect]
     Active Substance: EVOLOCUMAB
     Indication: Coronary artery disease
     Dosage: 140 MILLIGRAM, Q2WK
     Route: 065
     Dates: start: 20241023
  2. FAMOTIDINE [Concomitant]
     Active Substance: FAMOTIDINE
     Dosage: 40 MILLIGRAM, BID
     Route: 065
  3. PRALUENT [Concomitant]
     Active Substance: ALIROCUMAB
     Dosage: 75 MILLIGRAM, Q2WK
     Route: 065
  4. PRALUENT [Concomitant]
     Active Substance: ALIROCUMAB
     Dosage: 75 MILLIGRAM, QMO
     Route: 065
  5. FLONASE [Concomitant]
     Active Substance: FLUTICASONE PROPIONATE
     Indication: Hypersensitivity
     Dosage: UNK

REACTIONS (10)
  - Back pain [Unknown]
  - Myalgia [Unknown]
  - Hypoaesthesia [Unknown]
  - Headache [Recovered/Resolved]
  - Gait inability [Unknown]
  - Pain [Unknown]
  - Paraesthesia [Unknown]
  - Nervousness [Unknown]
  - Anxiety [Unknown]
  - Fear [Unknown]

NARRATIVE: CASE EVENT DATE: 20240101
